FAERS Safety Report 11326534 (Version 1)
Quarter: 2015Q3

REPORT INFORMATION
  Report Type: Spontaneous
  Country: US (occurrence: None)
  Receive Date: 20150629
  Receipt Date: 20150629
  Transmission Date: 20151125
  Serious: No
  Sender: FDA-Public Use
  Company Number: A-US2014-107935

PATIENT
  Age: 31 Year
  Sex: Female

DRUGS (4)
  1. TYVASO [Concomitant]
     Active Substance: TREPROSTINIL
  2. OPSUMIT [Suspect]
     Active Substance: MACITENTAN
     Indication: COR PULMONALE CHRONIC
     Route: 048
     Dates: start: 20140310
  3. PROVENTIL (SALBUTAMOL) [Concomitant]
  4. OMEPRAZOLE. [Concomitant]
     Active Substance: OMEPRAZOLE

REACTIONS (4)
  - Cough [None]
  - Flushing [None]
  - Abdominal discomfort [None]
  - Headache [None]

NARRATIVE: CASE EVENT DATE: 20141105
